FAERS Safety Report 23340139 (Version 1)
Quarter: 2023Q4

REPORT INFORMATION
  Report Type: Spontaneous
  Country: CN (occurrence: None)
  Receive Date: 20231227
  Receipt Date: 20231227
  Transmission Date: 20240109
  Serious: Yes (Hospitalization)
  Sender: FDA-Public Use
  Company Number: CN-ROCHE-3481358

PATIENT
  Age: 67 Year
  Sex: Female
  Weight: 65 kg

DRUGS (3)
  1. AVASTIN [Suspect]
     Active Substance: BEVACIZUMAB
     Indication: Therapeutic procedure
     Route: 041
     Dates: start: 20231104, end: 20231104
  2. CARBOPLATIN [Suspect]
     Active Substance: CARBOPLATIN
     Indication: Therapeutic procedure
     Route: 041
     Dates: start: 20231104, end: 20231104
  3. PACLITAXEL [Suspect]
     Active Substance: PACLITAXEL
     Indication: Therapeutic procedure
     Route: 041
     Dates: start: 20231104, end: 20231104

REACTIONS (1)
  - Myelosuppression [Recovering/Resolving]

NARRATIVE: CASE EVENT DATE: 20231113
